APPROVED DRUG PRODUCT: SYMMETREL
Active Ingredient: AMANTADINE HYDROCHLORIDE
Strength: 100MG **Federal Register determination that product was not discontinued or withdrawn for safety or effectiveness reasons**
Dosage Form/Route: CAPSULE;ORAL
Application: N016020 | Product #001
Applicant: ENDO PHARMACEUTICALS INC
Approved: Approved Prior to Jan 1, 1982 | RLD: Yes | RS: No | Type: DISCN